FAERS Safety Report 9104417 (Version 1)
Quarter: 2013Q1

REPORT INFORMATION
  Report Type: Other
  Country: KP (occurrence: KP)
  Receive Date: 20130220
  Receipt Date: 20130220
  Transmission Date: 20140127
  Serious: Yes (Other)
  Sender: FDA-Public Use
  Company Number: KP-PURDUE-USA-2013-0099061

PATIENT
  Age: 67 Year
  Sex: Male

DRUGS (2)
  1. TRAMADOL (SIMILAR TO NDA 21-745) [Suspect]
     Indication: PAIN
     Dosage: 400 MG, DAILY
     Route: 048
  2. PREGABALIN [Concomitant]
     Indication: PAIN
     Dosage: 225 MG, DAILY

REACTIONS (1)
  - Hyperaesthesia [Recovered/Resolved]
